FAERS Safety Report 6080192-1 (Version None)
Quarter: 2009Q1

REPORT INFORMATION
  Report Type: 
  Country: None (occurrence: None)
  Receive Date: 20090217
  Receipt Date: 20090210
  Transmission Date: 20090719
  Serious: Yes (Hospitalization)
  Sender: FDA-Public Use
  Company Number: US-ELI_LILLY_AND_COMPANY-US200901003745

PATIENT
  Sex: Male

DRUGS (2)
  1. HUMALOG MIX 75/25 [Suspect]
  2. RANEXA [Concomitant]
     Dosage: 1000 MG, 2/D

REACTIONS (4)
  - CHEST PAIN [None]
  - CONTUSION [None]
  - FALL [None]
  - TREMOR [None]
